FAERS Safety Report 8265051-8 (Version None)
Quarter: 2012Q2

REPORT INFORMATION
  Report Type: 
  Country: None (occurrence: None)
  Receive Date: 20120406
  Receipt Date: 20120405
  Transmission Date: 20120825
  Serious: Yes (Death, Hospitalization)
  Sender: FDA-Public Use
  Company Number: PHHY2012DE025794

PATIENT
  Sex: Male

DRUGS (1)
  1. SANDOSTATIN LAR [Suspect]
     Dosage: UNK UKN, UNK
     Route: 030

REACTIONS (2)
  - DEATH [None]
  - GENERAL PHYSICAL HEALTH DETERIORATION [None]
